FAERS Safety Report 9525122 (Version 1)
Quarter: 2013Q1

REPORT INFORMATION
  Report Type: Spontaneous
  Country: US (occurrence: None)
  Receive Date: 20130313
  Receipt Date: 20130313
  Transmission Date: 20140127
  Serious: No
  Sender: FDA-Public Use
  Company Number: 1000030778

PATIENT
  Age: 60 Year
  Sex: Female

DRUGS (11)
  1. SAVELLA (MILNACIPRAN HYDROCHLORIDE) (12.5 MILLIGRAM, TABLETS) [Suspect]
     Indication: FIBROMYALGIA
     Route: 048
     Dates: start: 201205, end: 201205
  2. SAVELLA (MILNACIPRAN HYDROCHLORIDE) (25 MILILGRAM, TABLETS) [Suspect]
     Indication: FIBROMYALGIA
     Dosage: 50 MG (25 MG,2 IN 1 D)
     Route: 048
     Dates: start: 201205, end: 20120517
  3. CELEXA (CITALOPRAM HYDROBROMIDE) (CITALOPRAM HYDROBROMIDE) [Concomitant]
  4. LORTAB (ACETAMINOPHEN, HYDROCODONE) (ACETAMINOPHEN, HYDROCODONE) [Concomitant]
  5. PEPCID (FAMOTIDINE) (FAMOTIDINE) [Concomitant]
  6. LOPRESSOR (METOPROLOL TARTRATE) (METOPROLOL TARTRATE) [Concomitant]
  7. CRESTOR (ROSUVASTATIN CALCIUM) (ROSUVASTATIN CALCIUM) [Concomitant]
  8. LISINOPRIL/HYDROCHLOROTHIAZIDE (ZESTORETIC) (ZESTORETIC) [Concomitant]
  9. PROTONIX (PANTOPRAZOLE SODIUM SESQUIHYDRATE) (PANTOPRAZOLE SODIUM SESQUIHYDRATE) [Concomitant]
  10. BACLOFEN (BACLOFEN) (BACLOFEN) [Concomitant]
  11. ASPIRIN (ACETYLSALICYLIC ACID) (ACETYLSALICYLIC ACID) [Concomitant]

REACTIONS (12)
  - Nausea [None]
  - Constipation [None]
  - Abdominal pain [None]
  - Hot flush [None]
  - Palpitations [None]
  - Pain in jaw [None]
  - Chest pain [None]
  - Panic attack [None]
  - Anxiety [None]
  - Depression [None]
  - Insomnia [None]
  - Back pain [None]
